FAERS Safety Report 25044190 (Version 1)
Quarter: 2025Q1

REPORT INFORMATION
  Report Type: Spontaneous
  Country: HK (occurrence: HK)
  Receive Date: 20250306
  Receipt Date: 20250306
  Transmission Date: 20250409
  Serious: Yes (Hospitalization)
  Sender: ROCHE
  Company Number: HK-ROCHE-10000221395

PATIENT

DRUGS (3)
  1. BEVACIZUMAB [Suspect]
     Active Substance: BEVACIZUMAB
     Indication: Hepatocellular carcinoma
     Route: 065
  2. CARBOPLATIN [Suspect]
     Active Substance: CARBOPLATIN
     Indication: Hepatocellular carcinoma
     Dosage: DOSE AUC 5 MG/ML/MIN
     Route: 065
  3. PACLITAXEL [Suspect]
     Active Substance: PACLITAXEL
     Indication: Hepatocellular carcinoma
     Route: 065

REACTIONS (4)
  - Abdominal pain [Unknown]
  - Pyrexia [Unknown]
  - C-reactive protein increased [Unknown]
  - Large intestine perforation [Unknown]
